FAERS Safety Report 5277240-5 (Version None)
Quarter: 2007Q1

REPORT INFORMATION
  Report Type: 
  Country: None (occurrence: None)
  Receive Date: 20070327
  Receipt Date: 20070315
  Transmission Date: 20070707
  Serious: Yes (Death)
  Sender: FDA-Public Use
  Company Number: US-JNJFOC-20070303846

PATIENT
  Sex: Female

DRUGS (17)
  1. INFLIXIMAB [Suspect]
     Dosage: Q6WKS
     Route: 042
  2. INFLIXIMAB [Suspect]
     Indication: RHEUMATOID ARTHRITIS
     Dosage: Q6WKS
     Route: 042
  3. METHOTREXATE [Concomitant]
  4. FOSAMAX [Concomitant]
  5. PREDNISONE [Concomitant]
  6. PLAQUENIL [Concomitant]
  7. NAPROSYN [Concomitant]
  8. NORMADINE [Concomitant]
  9. PREMARIN [Concomitant]
  10. ZELNORM [Concomitant]
  11. DOXYPIN [Concomitant]
  12. OSCAL [Concomitant]
  13. IRON SUPPLEMENT [Concomitant]
  14. MULTI-VITAMIN [Concomitant]
  15. TALWIN [Concomitant]
  16. DURAGESIC-100 [Concomitant]
  17. PREVACID [Concomitant]

REACTIONS (4)
  - ENTEROCOCCAL INFECTION [None]
  - PNEUMONIA [None]
  - RESPIRATORY FAILURE [None]
  - STAPHYLOCOCCAL SEPSIS [None]
